FAERS Safety Report 10404301 (Version 1)
Quarter: 2014Q1

REPORT INFORMATION
  Report Type: Spontaneous
  Country: US (occurrence: None)
  Receive Date: 20131226
  Receipt Date: 20131226
  Transmission Date: 20141002
  Serious: Yes (Other)
  Sender: FDA-Public Use
  Company Number: PHEH2012US005443

PATIENT
  Age: 18 Year
  Sex: Male
  Weight: 64.9 kg

DRUGS (4)
  1. AFINITOR (RAD) [Suspect]
     Indication: TUBEROUS SCLEROSIS
     Route: 048
     Dates: start: 20120128
  2. DEPAKOTE (VALPROATE SEMISODIUM) [Concomitant]
  3. TRILEPTAL (OXCARBAZEPINE) [Concomitant]
  4. MELATONIN (MELATONIN) [Concomitant]

REACTIONS (11)
  - Grand mal convulsion [None]
  - Mucosal inflammation [None]
  - Mouth ulceration [None]
  - Angiofibroma [None]
  - Weight increased [None]
  - Drug level decreased [None]
  - Initial insomnia [None]
  - Concomitant disease progression [None]
  - Acne [None]
  - Hypertension [None]
  - Stomatitis [None]
